FAERS Safety Report 4436030-3 (Version None)
Quarter: 2004Q3

REPORT INFORMATION
  Report Type: 
  Country: None (occurrence: None)
  Receive Date: 20040826
  Receipt Date: 20040815
  Transmission Date: 20050211
  Serious: Yes (Death, Hospitalization)
  Sender: FDA-Public Use
  Company Number: 163-20785-04070004

PATIENT
  Age: 34 Year
  Sex: Female
  Weight: 99.8821 kg

DRUGS (9)
  1. THALOMID [Suspect]
     Indication: GLIOMA
     Dosage: 400 MG, QHS, ORAL
     Route: 048
     Dates: start: 20040520, end: 20040701
  2. IRINOTECAN (IRINOTECAN) [Suspect]
     Indication: GLIOMA
     Dosage: 125 MG/M2, ONCE WEELY X 4 DOSES
     Dates: start: 20040520, end: 20040722
  3. DOXYCYCLINE [Suspect]
     Indication: GLIOMA
     Dosage: 50 MG, BID, ORAL
     Route: 048
     Dates: start: 20040520, end: 20040701
  4. LITHIUM CARBONATE [Concomitant]
  5. PROTONIX [Concomitant]
  6. KEPPRA [Concomitant]
  7. DEXAMETHASONE [Concomitant]
  8. LEXAPRO [Concomitant]
  9. RISEPERDAL (RISPERIDONE) [Concomitant]

REACTIONS (3)
  - LOSS OF CONSCIOUSNESS [None]
  - PULMONARY EMBOLISM [None]
  - SUDDEN DEATH [None]
